FAERS Safety Report 16357380 (Version 1)
Quarter: 2019Q2

REPORT INFORMATION
  Report Type: Report from Study
  Country: None (occurrence: IE)
  Receive Date: 20190527
  Receipt Date: 20190527
  Transmission Date: 20190711
  Serious: Yes (Hospitalization, Other)
  Sender: FDA-Public Use
  Company Number: IE-ABBVIE-19K-229-2797474-00

PATIENT
  Age: 78 Year
  Sex: Male

DRUGS (3)
  1. HUMIRA [Suspect]
     Active Substance: ADALIMUMAB
     Route: 058
     Dates: start: 2019
  2. METHOTREXATE. [Concomitant]
     Active Substance: METHOTREXATE
     Indication: PRODUCT USED FOR UNKNOWN INDICATION
     Dates: end: 2019
  3. HUMIRA [Suspect]
     Active Substance: ADALIMUMAB
     Indication: RHEUMATOID ARTHRITIS
     Route: 058
     Dates: start: 20171106, end: 2019

REACTIONS (5)
  - Pneumothorax [Recovering/Resolving]
  - Injury [Recovering/Resolving]
  - Lower respiratory tract infection [Recovering/Resolving]
  - Haemothorax [Recovering/Resolving]
  - Road traffic accident [Recovering/Resolving]

NARRATIVE: CASE EVENT DATE: 2019
